FAERS Safety Report 15626724 (Version 2)
Quarter: 2018Q4

REPORT INFORMATION
  Report Type: Spontaneous
  Country: FR (occurrence: FR)
  Receive Date: 20181116
  Receipt Date: 20181120
  Transmission Date: 20190205
  Serious: Yes (Hospitalization)
  Sender: FDA-Public Use
  Company Number: FR-PROVELL PHARMACEUTICALS-2058945

PATIENT
  Age: 63 Year
  Sex: Male

DRUGS (13)
  1. METFORMIN [Suspect]
     Active Substance: METFORMIN HYDROCHLORIDE
     Route: 048
  2. FUROSEMIDE. [Suspect]
     Active Substance: FUROSEMIDE
     Route: 048
  3. ZELITREX [Suspect]
     Active Substance: VALACYCLOVIR HYDROCHLORIDE
     Route: 048
  4. NOVONORM [Suspect]
     Active Substance: REPAGLINIDE
     Route: 048
  5. OMEPRAZOLE. [Suspect]
     Active Substance: OMEPRAZOLE
     Route: 048
     Dates: end: 20181024
  6. GLICLAZIDE [Suspect]
     Active Substance: GLICLAZIDE
     Route: 048
  7. HUMALOG [Suspect]
     Active Substance: INSULIN LISPRO
     Route: 058
  8. FENOFIBRATE. [Suspect]
     Active Substance: FENOFIBRATE
     Route: 048
  9. EXFORGE [Suspect]
     Active Substance: AMLODIPINE BESYLATE\VALSARTAN
     Route: 048
  10. TRESIBA [Suspect]
     Active Substance: INSULIN DEGLUDEC
     Route: 058
     Dates: start: 20181009
  11. BACTRIM [Suspect]
     Active Substance: SULFAMETHOXAZOLE\TRIMETHOPRIM
     Route: 048
     Dates: end: 20181024
  12. EUTHYROX [Suspect]
     Active Substance: LEVOTHYROXINE SODIUM
     Indication: HYPERTHYROIDISM
     Route: 048
  13. MABTHERA [Suspect]
     Active Substance: RITUXIMAB
     Route: 042
     Dates: start: 2017, end: 20180129

REACTIONS (1)
  - Agranulocytosis [Not Recovered/Not Resolved]

NARRATIVE: CASE EVENT DATE: 20181024
